FAERS Safety Report 4636269-8 (Version None)
Quarter: 2005Q2

REPORT INFORMATION
  Report Type: 
  Country: None (occurrence: None)
  Receive Date: 20050415
  Receipt Date: 20040503
  Transmission Date: 20051028
  Serious: Yes (Other)
  Sender: FDA-Public Use
  Company Number: US-BRISTOL-MYERS SQUIBB COMPANY-12577078

PATIENT
  Age: 66 Year
  Sex: Female
  Weight: 98 kg

DRUGS (15)
  1. CARBOPLATIN [Suspect]
     Indication: OVARIAN CANCER
     Route: 042
     Dates: start: 20040429, end: 20040429
  2. ANZEMET [Concomitant]
     Indication: PREMEDICATION
     Route: 042
  3. DECADRON [Concomitant]
     Indication: PREMEDICATION
     Route: 042
  4. BENADRYL [Concomitant]
     Indication: PREMEDICATION
     Route: 042
  5. PEPCID [Concomitant]
     Indication: PREMEDICATION
     Route: 042
  6. VITAMIN B6 [Concomitant]
  7. VITAMIN B-12 [Concomitant]
  8. LECITHIN [Concomitant]
  9. OSFOLATE [Concomitant]
  10. BLISTEX [Concomitant]
  11. SYNTHROID [Concomitant]
  12. PRILOSEC [Concomitant]
  13. GLUCOPHAGE [Concomitant]
  14. NEURONTIN [Concomitant]
  15. PRAVACHOL [Concomitant]

REACTIONS (1)
  - ANAPHYLACTIC SHOCK [None]
